FAERS Safety Report 8564216-5 (Version None)
Quarter: 2012Q3

REPORT INFORMATION
  Report Type: 
  Country: None (occurrence: None)
  Receive Date: 20120727
  Receipt Date: 20120727
  Transmission Date: 20120928
  Serious: Yes (Hospitalization, Other)
  Sender: FDA-Public Use
  Company Number: None

PATIENT
  Sex: Female
  Weight: 67.5 kg

DRUGS (5)
  1. DEXAMETHASONE [Suspect]
     Dosage: 160 MG
     Dates: start: 20120712
  2. SPIRONOLACTONE [Concomitant]
  3. VELCADE [Suspect]
     Dosage: 4.4 MG
     Dates: start: 20120712
  4. FUROSEMIDE [Concomitant]
  5. MELPHALAN HYDROCHLORIDE [Suspect]
     Dosage: 56 MG
     Dates: start: 20120712

REACTIONS (3)
  - DEHYDRATION [None]
  - HYPONATRAEMIA [None]
  - ASTHENIA [None]
